FAERS Safety Report 19700497 (Version 4)
Quarter: 2021Q4

REPORT INFORMATION
  Report Type: Report from Study
  Country: US (occurrence: US)
  Receive Date: 20210814
  Receipt Date: 20211217
  Transmission Date: 20220303
  Serious: Yes (Hospitalization, Other)
  Sender: FDA-Public Use
  Company Number: NVSC2021US178990

PATIENT
  Age: 44 Year
  Sex: Female

DRUGS (3)
  1. ENTRESTO [Suspect]
     Active Substance: SACUBITRIL\VALSARTAN
     Indication: Cardiac failure
     Dosage: 50 MG, BID
     Route: 048
     Dates: start: 202105
  2. BUMETANIDE [Suspect]
     Active Substance: BUMETANIDE
     Indication: Cardiac failure
     Dosage: 2 MG, BID
     Route: 048
     Dates: start: 2021
  3. BUMETANIDE [Suspect]
     Active Substance: BUMETANIDE
     Dosage: 2 DF, BID 2 MG (TWICE A DAY)
     Route: 065
     Dates: start: 2021

REACTIONS (7)
  - Cardiac failure [Unknown]
  - Cataract [Unknown]
  - Peripheral swelling [Recovering/Resolving]
  - Fluid retention [Not Recovered/Not Resolved]
  - Abdominal distension [Unknown]
  - Weight fluctuation [Unknown]
  - Cough [Unknown]

NARRATIVE: CASE EVENT DATE: 20210901
